FAERS Safety Report 14282301 (Version 1)
Quarter: 2017Q4

REPORT INFORMATION
  Report Type: Spontaneous
  Country: US (occurrence: US)
  Receive Date: 20171213
  Receipt Date: 20171213
  Transmission Date: 20180321
  Serious: Yes (Other)
  Sender: FDA-Public Use
  Company Number: US-TEVA-2017-US-827080

PATIENT
  Age: 58 Year
  Sex: Female

DRUGS (16)
  1. CYCLOBENZAPRINE. [Concomitant]
     Active Substance: CYCLOBENZAPRINE
  2. ACETAMINOPHEN. [Concomitant]
     Active Substance: ACETAMINOPHEN
  3. TOPIRAMATE. [Concomitant]
     Active Substance: TOPIRAMATE
  4. BUTALBITAL [Concomitant]
     Active Substance: BUTALBITAL
  5. ZYRTEC [Concomitant]
     Active Substance: CETIRIZINE HYDROCHLORIDE
  6. DULOXETINE. [Suspect]
     Active Substance: DULOXETINE
     Dosage: DOSE: 90 MG
     Dates: start: 201708
  7. CAFFEINE. [Concomitant]
     Active Substance: CAFFEINE
  8. DULOXETINE. [Suspect]
     Active Substance: DULOXETINE
     Indication: PAIN
     Dates: start: 201706
  9. SEROQUEL [Suspect]
     Active Substance: QUETIAPINE FUMARATE
     Route: 065
  10. TRAZODONE [Concomitant]
     Active Substance: TRAZODONE HYDROCHLORIDE
     Indication: SLEEP DISORDER
     Dosage: AT BEDTIME
  11. KETOROLAC [Concomitant]
     Active Substance: KETOROLAC\KETOROLAC TROMETHAMINE
     Dosage: TAKES NO MORE THAN FIVE DAYS AT A TIME, DOES REPEAT THE FIVE DAYS EVERY MONTH
  12. LEVOTHYROXINE. [Concomitant]
     Active Substance: LEVOTHYROXINE
  13. LITHIUM. [Concomitant]
     Active Substance: LITHIUM
  14. CODEINE PHOSPHATE [Concomitant]
     Active Substance: CODEINE PHOSPHATE
  15. NEXIUM [Concomitant]
     Active Substance: ESOMEPRAZOLE MAGNESIUM
  16. BENADRYL [Concomitant]
     Active Substance: DIPHENHYDRAMINE HYDROCHLORIDE

REACTIONS (7)
  - Nausea [Unknown]
  - Dyskinesia [Unknown]
  - Somnolence [Unknown]
  - Shoulder operation [Unknown]
  - Blood pressure increased [Recovered/Resolved]
  - Muscle spasms [Unknown]
  - Blood glucose increased [Recovered/Resolved]

NARRATIVE: CASE EVENT DATE: 20170810
